FAERS Safety Report 15337661 (Version 6)
Quarter: 2019Q2

REPORT INFORMATION
  Report Type: Report from Study
  Country: US (occurrence: US)
  Receive Date: 20180831
  Receipt Date: 20190402
  Transmission Date: 20190711
  Serious: Yes (Hospitalization)
  Sender: FDA-Public Use
  Company Number: PHHY2018US087292

PATIENT
  Age: 28 Year
  Sex: Female

DRUGS (2)
  1. ONDANSETRON [Concomitant]
     Active Substance: ONDANSETRON
     Indication: PRODUCT USED FOR UNKNOWN INDICATION
     Dosage: 4 MG, ODT
     Route: 065
  2. AFINITOR [Suspect]
     Active Substance: EVEROLIMUS
     Indication: ANGIOMYOLIPOMA
     Dosage: 5 MG, QD
     Route: 048
     Dates: start: 20150527

REACTIONS (15)
  - Tumour pain [Not Recovered/Not Resolved]
  - Renal disorder [Not Recovered/Not Resolved]
  - Anxiety [Not Recovered/Not Resolved]
  - Nausea [Not Recovered/Not Resolved]
  - Heart rate increased [Not Recovered/Not Resolved]
  - Dizziness [Not Recovered/Not Resolved]
  - Pain [Not Recovered/Not Resolved]
  - Hydronephrosis [Not Recovered/Not Resolved]
  - Malignant neoplasm progression [Recovering/Resolving]
  - Fall [Not Recovered/Not Resolved]
  - Overweight [Not Recovered/Not Resolved]
  - Asthenia [Not Recovered/Not Resolved]
  - Renal neoplasm [Recovering/Resolving]
  - Malaise [Not Recovered/Not Resolved]
  - Tremor [Not Recovered/Not Resolved]

NARRATIVE: CASE EVENT DATE: 20190222
